FAERS Safety Report 8378353-1 (Version None)
Quarter: 2012Q2

REPORT INFORMATION
  Report Type: 
  Country: None (occurrence: None)
  Receive Date: 20120522
  Receipt Date: 20120510
  Transmission Date: 20120825
  Serious: Yes (Hospitalization, Disabling, Other)
  Sender: FDA-Public Use
  Company Number: US-ELI_LILLY_AND_COMPANY-US201205005208

PATIENT
  Sex: Male

DRUGS (13)
  1. LIPITOR [Concomitant]
  2. MULTIVITAMIN [Concomitant]
  3. BROMOCRIPTINE MESYLATE [Concomitant]
  4. ASPIRIN [Concomitant]
  5. BACLOFEN [Concomitant]
  6. CYMBALTA [Suspect]
     Dosage: 60 MG, QD
  7. HYDROCORTISONE [Concomitant]
  8. TESTOSTERONE [Concomitant]
  9. CLONAZEPAM [Concomitant]
  10. ASCORBIC ACID [Concomitant]
  11. HUMATROPE [Suspect]
     Indication: GROWTH HORMONE DEFICIENCY
     Dosage: 0.4 MG, QD
     Dates: start: 20050101
  12. VITAMIN D [Concomitant]
  13. LEVOXYL [Concomitant]

REACTIONS (3)
  - CAROTID ARTERY OCCLUSION [None]
  - ARTERIAL DISORDER [None]
  - CEREBROVASCULAR ACCIDENT [None]
